FAERS Safety Report 20924281 (Version 1)
Quarter: 2022Q2

REPORT INFORMATION
  Report Type: Spontaneous
  Country: CA (occurrence: CA)
  Receive Date: 20220607
  Receipt Date: 20220607
  Transmission Date: 20220721
  Serious: Yes (Hospitalization, Other)
  Sender: FDA-Public Use
  Company Number: CA-BRISTOL-MYERS SQUIBB COMPANY-2022-049891

PATIENT
  Age: 64 Year
  Sex: Male

DRUGS (5)
  1. REVLIMID [Suspect]
     Active Substance: LENALIDOMIDE
     Indication: Plasma cell myeloma
     Dosage: DOSE : 10 MG;     FREQ : ONCE DAILY X 21/28DAYS
     Route: 048
  2. ENTECAVIR [Concomitant]
     Active Substance: ENTECAVIR
     Indication: Plasma cell myeloma
     Dosage: ONCE DAILY
     Route: 048
  3. ACYCLOVIR [Concomitant]
     Active Substance: ACYCLOVIR
     Route: 048
  4. ASPIRIN [Concomitant]
     Active Substance: ASPIRIN
     Dosage: ORALLY ONCE DAILY WITH BREAKFAST
     Route: 048
  5. CALCITRIOL [Concomitant]
     Active Substance: CALCITRIOL
     Dosage: EVERY TUESDAY, THURSDAY AND SATURDAY
     Route: 048

REACTIONS (4)
  - Pneumonia [Unknown]
  - Acute kidney injury [Unknown]
  - Gastric ulcer [Unknown]
  - Dry eye [Unknown]

NARRATIVE: CASE EVENT DATE: 20220401
